FAERS Safety Report 21982226 (Version 1)
Quarter: 2023Q1

REPORT INFORMATION
  Report Type: Report from Study
  Country: US (occurrence: US)
  Receive Date: 20230213
  Receipt Date: 20230213
  Transmission Date: 20230417
  Serious: Yes (Death)
  Sender: FDA-Public Use
  Company Number: US-ABBVIE-4305298

PATIENT
  Sex: Female

DRUGS (1)
  1. VENCLEXTA [Suspect]
     Active Substance: VENETOCLAX
     Indication: Acute myeloid leukaemia
     Dosage: TAKE 1 TAB BY MOUTH WITH FOOD AND A FULL GLASS OF WATER FOR 14 DAYS ON THEN 14 DAYS OFF
     Route: 048
     Dates: start: 20220525

REACTIONS (1)
  - Death [Fatal]
